FAERS Safety Report 13346586 (Version 2)
Quarter: 2017Q3

REPORT INFORMATION
  Report Type: Spontaneous
  Country: FR (occurrence: FR)
  Receive Date: 20170317
  Receipt Date: 20170801
  Transmission Date: 20171127
  Serious: Yes (Death, Hospitalization, Other)
  Sender: FDA-Public Use
  Company Number: FR-PFIZER INC-2017109939

PATIENT
  Age: 66 Year
  Sex: Male

DRUGS (4)
  1. DALACINE [Suspect]
     Active Substance: CLINDAMYCIN HYDROCHLORIDE
     Dosage: 600 MG, ONCE EVERY 6 HOURS
     Route: 042
     Dates: start: 20170203, end: 20170219
  2. CEFAZOLINE [Suspect]
     Active Substance: CEFAZOLIN SODIUM
     Dosage: UNK
     Dates: start: 20170217, end: 20170219
  3. AUGMENTIN [Suspect]
     Active Substance: AMOXICILLIN\CLAVULANATE POTASSIUM
     Dosage: 4 G, DAILY
     Route: 048
     Dates: start: 20170123, end: 20170131
  4. ORBENINE [Suspect]
     Active Substance: CLOXACILLIN SODIUM
     Dosage: 2 G, ONCE EVERY 6 HOURS
     Route: 042
     Dates: start: 20170203, end: 20170216

REACTIONS (4)
  - Eosinophilia [Recovered/Resolved]
  - Face oedema [Recovered/Resolved]
  - Glomerulonephritis [Recovered/Resolved]
  - Urticaria [Recovered/Resolved]

NARRATIVE: CASE EVENT DATE: 20170213
